FAERS Safety Report 8847906 (Version 1)
Quarter: 2012Q4

REPORT INFORMATION
  Report Type: 
  Country: US (occurrence: US)
  Receive Date: 20121018
  Receipt Date: 20121018
  Transmission Date: 20130627
  Serious: Yes (Other)
  Sender: FDA-Public Use
  Company Number: US-PFIZER INC-2012259476

PATIENT
  Sex: Female

DRUGS (3)
  1. LYRICA [Suspect]
     Dosage: 75 mg, UNK
  2. LYRICA [Suspect]
     Dosage: 150 mg, UNK
  3. LORTAB [Concomitant]
     Dosage: UNK

REACTIONS (3)
  - Road traffic accident [Unknown]
  - Feeling abnormal [Unknown]
  - Somnolence [Unknown]
